FAERS Safety Report 23758598 (Version 1)
Quarter: 2024Q2

REPORT INFORMATION
  Report Type: Spontaneous
  Country: US (occurrence: None)
  Receive Date: 20240418
  Receipt Date: 20240418
  Transmission Date: 20240716
  Serious: No
  Sender: FDA-Public Use
  Company Number: US-ROCHE-3443059

PATIENT
  Sex: Female

DRUGS (1)
  1. AVASTIN [Suspect]
     Active Substance: BEVACIZUMAB
     Indication: Macular degeneration
     Dosage: EYE INJECTION ;ONGOING: UNKNOWN
     Route: 065

REACTIONS (4)
  - Off label use [Unknown]
  - Eye disorder [Unknown]
  - Burning sensation [Unknown]
  - Thrombosis [Unknown]
